FAERS Safety Report 7945236-8 (Version None)
Quarter: 2011Q4

REPORT INFORMATION
  Report Type: 
  Country: None (occurrence: None)
  Receive Date: 20111129
  Receipt Date: 20110711
  Transmission Date: 20120403
  Serious: No
  Sender: FDA-Public Use
  Company Number: US-GLAXOSMITHKLINE-A0936299A

PATIENT
  Age: 11 Year
  Sex: Female

DRUGS (2)
  1. VERAMYST [Suspect]
     Route: 045
     Dates: start: 20110708
  2. FLOVENT [Suspect]
     Route: 055
     Dates: start: 20110708

REACTIONS (3)
  - HEADACHE [None]
  - FATIGUE [None]
  - NAUSEA [None]
